FAERS Safety Report 25154187 (Version 1)
Quarter: 2025Q2

REPORT INFORMATION
  Report Type: Spontaneous
  Country: FR (occurrence: FR)
  Receive Date: 20250403
  Receipt Date: 20250403
  Transmission Date: 20250717
  Serious: Yes (Other)
  Sender: AUROBINDO
  Company Number: FR-AFSSAPS-2025021106

PATIENT
  Age: 84 Year
  Sex: Female

DRUGS (4)
  1. ATENOLOL [Suspect]
     Active Substance: ATENOLOL
     Indication: Atrial fibrillation
     Dosage: 25 MILLIGRAM, ONCE A DAY
     Route: 048
     Dates: start: 20240329
  2. AMIODARONE [Suspect]
     Active Substance: AMIODARONE
     Indication: Atrial fibrillation
     Dosage: 200 MILLIGRAM, ONCE A DAY
     Route: 048
     Dates: start: 20240329
  3. AMOXICILLIN [Suspect]
     Active Substance: AMOXICILLIN
     Indication: Lung disorder
     Dosage: 3 GRAM, ONCE A DAY
     Route: 048
     Dates: start: 20240329, end: 20240404
  4. COLCHICINE [Suspect]
     Active Substance: COLCHICINE
     Indication: Pericardial effusion
     Dosage: 1 MILLIGRAM, ONCE A DAY
     Route: 048
     Dates: start: 20240329, end: 20240402

REACTIONS (1)
  - Diarrhoea [Recovered/Resolved]

NARRATIVE: CASE EVENT DATE: 20240402
